FAERS Safety Report 24742886 (Version 1)
Quarter: 2024Q4

REPORT INFORMATION
  Report Type: Spontaneous
  Country: US (occurrence: US)
  Receive Date: 20241217
  Receipt Date: 20241217
  Transmission Date: 20250115
  Serious: Yes (Hospitalization, Other)
  Sender: INCYTE
  Company Number: US-INCYTE CORPORATION-2024IN013315

PATIENT

DRUGS (3)
  1. JAKAFI [Suspect]
     Active Substance: RUXOLITINIB
     Dosage: UNK
     Route: 065
     Dates: start: 20241120
  2. ITACITINIB [Concomitant]
     Active Substance: ITACITINIB
     Indication: Myelodysplastic syndrome
     Dosage: 300 MILLIGRAM, QD
     Route: 048
     Dates: start: 20240308, end: 20241029
  3. ELIQUIS [Concomitant]
     Active Substance: APIXABAN
     Indication: Anticoagulant therapy
     Dosage: 5 MILLIGRAM, BID
     Route: 065

REACTIONS (10)
  - Atrial fibrillation [Recovered/Resolved]
  - Ventricular hypokinesia [Unknown]
  - Aortic valve incompetence [Unknown]
  - Mitral valve incompetence [Unknown]
  - White blood cell count increased [Unknown]
  - Ejection fraction decreased [Unknown]
  - Aortic valve sclerosis [Unknown]
  - Aortic valve calcification [Unknown]
  - Aortic aneurysm [Unknown]
  - Platelet count decreased [Unknown]

NARRATIVE: CASE EVENT DATE: 20241126
